FAERS Safety Report 15447461 (Version 2)
Quarter: 2018Q4

REPORT INFORMATION
  Report Type: Spontaneous
  Country: US (occurrence: US)
  Receive Date: 20180928
  Receipt Date: 20181016
  Transmission Date: 20190204
  Serious: No
  Sender: FDA-Public Use
  Company Number: US-AMGEN-USASP2018133574

PATIENT
  Sex: Male
  Weight: 105.2 kg

DRUGS (5)
  1. LODINE [Concomitant]
     Active Substance: ETODOLAC
     Dosage: 500 MG, BID
     Route: 048
  2. ENBREL [Suspect]
     Active Substance: ETANERCEPT
     Indication: PSORIATIC ARTHROPATHY
     Dosage: 50 MG, QWK
     Route: 065
  3. METHOTREXATE. [Concomitant]
     Active Substance: METHOTREXATE
     Indication: PSORIASIS
  4. METHOTREXATE. [Concomitant]
     Active Substance: METHOTREXATE
     Indication: PSORIATIC ARTHROPATHY
     Dosage: UNK
  5. ENBREL [Suspect]
     Active Substance: ETANERCEPT
     Dosage: 50 MG, QWK
     Route: 065

REACTIONS (10)
  - Joint range of motion decreased [Unknown]
  - Joint noise [Unknown]
  - Wrong technique in product usage process [Unknown]
  - Medical procedure [Unknown]
  - Injection site vesicles [Unknown]
  - Injection site swelling [Unknown]
  - Nausea [Unknown]
  - Mouth ulceration [Unknown]
  - Abdominal discomfort [Unknown]
  - Injection site pain [Unknown]
